FAERS Safety Report 11982735 (Version 3)
Quarter: 2016Q3

REPORT INFORMATION
  Report Type: Spontaneous
  Country: US (occurrence: US)
  Receive Date: 20160201
  Receipt Date: 20160718
  Transmission Date: 20161109
  Serious: Yes (Hospitalization, Other)
  Sender: FDA-Public Use
  Company Number: US-BAYER-2016-015488

PATIENT
  Age: 26 Year
  Sex: Female
  Weight: 68 kg

DRUGS (4)
  1. DORZOLAMIDE [Concomitant]
     Active Substance: DORZOLAMIDE
     Dosage: UNK
     Dates: start: 2012
  2. YAZ [Suspect]
     Active Substance: DROSPIRENONE\ETHINYL ESTRADIOL
     Dosage: UNK
     Route: 048
     Dates: start: 200601, end: 201008
  3. KEPPRA [Concomitant]
     Active Substance: LEVETIRACETAM
     Dosage: UNK
     Dates: start: 2012
  4. LATANOPROST. [Concomitant]
     Active Substance: LATANOPROST
     Dosage: UNK
     Dates: start: 2012

REACTIONS (8)
  - Benign intracranial hypertension [None]
  - Epilepsy [None]
  - Visual acuity reduced [None]
  - Seizure [None]
  - Depression [None]
  - Anxiety [None]
  - Blindness [None]
  - Thrombosis [None]

NARRATIVE: CASE EVENT DATE: 2010
